FAERS Safety Report 22257482 (Version 8)
Quarter: 2023Q4

REPORT INFORMATION
  Report Type: Report from Study
  Country: US (occurrence: US)
  Receive Date: 20230427
  Receipt Date: 20231103
  Transmission Date: 20240110
  Serious: No
  Sender: FDA-Public Use
  Company Number: US-002147023-NVSC2023US090929

PATIENT
  Age: 24 Year
  Sex: Female

DRUGS (1)
  1. KESIMPTA [Suspect]
     Active Substance: OFATUMUMAB
     Indication: Relapsing multiple sclerosis
     Dosage: 20 MG, QMO
     Route: 058
     Dates: start: 20230216

REACTIONS (11)
  - COVID-19 [Unknown]
  - Speech disorder [Unknown]
  - Pain [Unknown]
  - Bronchitis [Unknown]
  - Ear infection bacterial [Unknown]
  - Migraine [Recovering/Resolving]
  - Hypoaesthesia [Unknown]
  - Condition aggravated [Unknown]
  - Nausea [Unknown]
  - Streptococcal infection [Unknown]
  - Therapeutic response shortened [Unknown]

NARRATIVE: CASE EVENT DATE: 20230318
